FAERS Safety Report 10203319 (Version 1)
Quarter: 2014Q2

REPORT INFORMATION
  Report Type: Spontaneous
  Country: SE (occurrence: SE)
  Receive Date: 20140529
  Receipt Date: 20140529
  Transmission Date: 20141212
  Serious: Yes (Other)
  Sender: FDA-Public Use
  Company Number: PHHY2014SE063235

PATIENT
  Sex: Male
  Weight: 30 kg

DRUGS (5)
  1. EXJADE [Suspect]
     Dosage: 250 MG
     Dates: start: 201312
  2. EXJADE [Suspect]
     Dosage: 500 MG
  3. EXJADE [Suspect]
     Dosage: 750 MG
  4. EXJADE [Suspect]
     Dosage: 250 MG
     Dates: start: 201312
  5. EXJADE [Suspect]
     Dosage: 500 MG

REACTIONS (2)
  - Haematuria [Not Recovered/Not Resolved]
  - Blood creatinine increased [Not Recovered/Not Resolved]
